FAERS Safety Report 6441103-X (Version None)
Quarter: 2009Q4

REPORT INFORMATION
  Report Type: 
  Country: None (occurrence: None)
  Receive Date: 20091113
  Receipt Date: 20091113
  Transmission Date: 20100525
  Serious: Yes (Other)
  Sender: FDA-Public Use
  Company Number: None

PATIENT
  Age: 56 Year
  Sex: Female
  Weight: 65.318 kg

DRUGS (1)
  1. PREVAGE M.D. ALLERGAN [Suspect]
     Indication: HYPERAESTHESIA
     Dosage: ONE PEA SIZED PORTION EVERY OTHER DAY CUTANEOUS   ONCE ONLY
     Route: 003
     Dates: start: 20090925, end: 20090925

REACTIONS (5)
  - BURNING SENSATION [None]
  - ERYTHEMA [None]
  - PHOTOSENSITIVITY REACTION [None]
  - PRODUCT QUALITY ISSUE [None]
  - RASH [None]
